FAERS Safety Report 5999637-8 (Version None)
Quarter: 2008Q4

REPORT INFORMATION
  Report Type: 
  Country: None (occurrence: None)
  Receive Date: 20081215
  Receipt Date: 20081203
  Transmission Date: 20090506
  Serious: Yes (Hospitalization)
  Sender: FDA-Public Use
  Company Number: CA-ROCHE-568626

PATIENT
  Sex: Male
  Weight: 103.7 kg

DRUGS (5)
  1. CAPECITABINE [Suspect]
     Dosage: LAST DOSE PRIOR TO SAE: 31 MAY 2008 PERMANENTLY DISCONTINUED: 02 JUNE 2008
     Route: 048
     Dates: start: 20080424, end: 20080602
  2. BEVACIZUMAB [Suspect]
     Dosage: LAST DOSE PRIOR TO SAE: 22 MAY 2008 PERMANENTLY DISCONTINUED: 02 JUNE 2008
     Route: 042
     Dates: start: 20080424, end: 20080602
  3. ERLOTINIB [Suspect]
     Route: 065
  4. LIPITOR [Concomitant]
     Dates: start: 20060101
  5. DIOVAN [Concomitant]
     Dates: start: 20060101

REACTIONS (2)
  - CROHN'S DISEASE [None]
  - DIARRHOEA [None]
